FAERS Safety Report 4393680-0 (Version None)
Quarter: 2004Q3

REPORT INFORMATION
  Report Type: 
  Country: None (occurrence: None)
  Receive Date: 20040709
  Receipt Date: 20040625
  Transmission Date: 20050211
  Serious: Yes (Hospitalization, Other)
  Sender: FDA-Public Use
  Company Number: PHHO2004RU08993

PATIENT
  Age: 83 Year
  Sex: Female
  Weight: 47 kg

DRUGS (4)
  1. ZOLEDRONATE VS PLACEBO [Suspect]
     Indication: OSTEOPOROSIS POSTMENOPAUSAL
     Dosage: DOUBLE BLIND
     Route: 042
     Dates: start: 20021031
  2. CALCIUM [Concomitant]
     Indication: OSTEOPOROSIS POSTMENOPAUSAL
  3. VITAMIN D [Concomitant]
     Indication: OSTEOPOROSIS POSTMENOPAUSAL
  4. DICLOFENAC [Suspect]
     Indication: BACK PAIN
     Dosage: 100MG
     Dates: start: 20040408, end: 20040621

REACTIONS (7)
  - ABDOMINAL PAIN [None]
  - BACK PAIN [None]
  - CONCOMITANT DISEASE PROGRESSION [None]
  - DRUG TOXICITY [None]
  - NAUSEA [None]
  - RADICULITIS [None]
  - VOMITING [None]
